FAERS Safety Report 12753146 (Version 1)
Quarter: 2016Q3

REPORT INFORMATION
  Report Type: Spontaneous
  Country: US (occurrence: US)
  Receive Date: 20160916
  Receipt Date: 20160916
  Transmission Date: 20161109
  Serious: No
  Sender: FDA-Public Use
  Company Number: US-TEVA-687237ACC

PATIENT
  Age: 27 Year
  Sex: Female
  Weight: 58.11 kg

DRUGS (2)
  1. DAILY VITAMINS [Concomitant]
  2. PARAGARD T 380A [Suspect]
     Active Substance: COPPER
     Indication: CONTRACEPTION
     Dates: start: 201607, end: 201608

REACTIONS (2)
  - Device expulsion [Recovered/Resolved]
  - Therapy cessation [Unknown]

NARRATIVE: CASE EVENT DATE: 201608
